FAERS Safety Report 10048839 (Version 3)
Quarter: 2014Q2

REPORT INFORMATION
  Report Type: Spontaneous
  Country: IT (occurrence: IT)
  Receive Date: 20140331
  Receipt Date: 20140423
  Transmission Date: 20141212
  Serious: Yes (Hospitalization)
  Sender: FDA-Public Use
  Company Number: PHHY2014IT035524

PATIENT
  Age: 34 Year
  Sex: Female

DRUGS (3)
  1. ZOLPIDEM [Suspect]
     Indication: DRUG ABUSE
     Dosage: 100 MG, ONCE/SINGLE
     Route: 048
     Dates: start: 20140220, end: 20140220
  2. HALCION [Suspect]
     Indication: DRUG ABUSE
     Dosage: 250 UG, QD AT EVENING
     Route: 048
     Dates: start: 20140220, end: 20140220
  3. LEXOTAN [Suspect]
     Indication: ANXIETY
     Dosage: 15 DRP, PRN AS NEEDED
     Route: 048
     Dates: start: 20140220, end: 20140220

REACTIONS (2)
  - Sopor [Recovered/Resolved]
  - Drug abuse [Recovered/Resolved]
